FAERS Safety Report 24377731 (Version 2)
Quarter: 2025Q2

REPORT INFORMATION
  Report Type: Report from Study
  Country: US (occurrence: US)
  Receive Date: 20240930
  Receipt Date: 20250402
  Transmission Date: 20250717
  Serious: Yes (Death, Other)
  Sender: TAKEDA
  Company Number: US-TAKEDA-2024TUS073290

PATIENT
  Sex: Male

DRUGS (5)
  1. FRUQUINTINIB [Suspect]
     Active Substance: FRUQUINTINIB
     Indication: Colon cancer
  2. FRUQUINTINIB [Suspect]
     Active Substance: FRUQUINTINIB
  3. FRUQUINTINIB [Suspect]
     Active Substance: FRUQUINTINIB
     Dates: start: 20240719, end: 20240728
  4. FRUQUINTINIB [Suspect]
     Active Substance: FRUQUINTINIB
  5. FRUQUINTINIB [Suspect]
     Active Substance: FRUQUINTINIB

REACTIONS (7)
  - Death [Fatal]
  - Colon cancer [Unknown]
  - Fatigue [Unknown]
  - Diarrhoea [Unknown]
  - Blood pressure increased [Not Recovered/Not Resolved]
  - Blood bilirubin increased [Not Recovered/Not Resolved]
  - Asthenia [Recovering/Resolving]
